FAERS Safety Report 5631182-1 (Version None)
Quarter: 2008Q1

REPORT INFORMATION
  Report Type: 
  Country: None (occurrence: None)
  Receive Date: 20080131
  Receipt Date: 20071203
  Transmission Date: 20080703
  Serious: No
  Sender: FDA-Public Use
  Company Number: 163-21880-07101707

PATIENT
  Age: 87 Year
  Sex: Female

DRUGS (6)
  1. REVLIMID [Suspect]
     Indication: HAEMATOPOIETIC NEOPLASM
     Dosage: 5 MG, DAILY FOR 28 DAYS, ORAL; 10 MG, 1 IN 1 D, ORAL
     Route: 048
     Dates: start: 20070514, end: 20070701
  2. REVLIMID [Suspect]
     Indication: MYELODYSPLASTIC SYNDROME
     Dosage: 5 MG, DAILY FOR 28 DAYS, ORAL; 10 MG, 1 IN 1 D, ORAL
     Route: 048
     Dates: start: 20070514, end: 20070701
  3. REVLIMID [Suspect]
     Indication: NEOPLASM
     Dosage: 5 MG, DAILY FOR 28 DAYS, ORAL; 10 MG, 1 IN 1 D, ORAL
     Route: 048
     Dates: start: 20070514, end: 20070701
  4. REVLIMID [Suspect]
     Indication: HAEMATOPOIETIC NEOPLASM
     Dosage: 5 MG, DAILY FOR 28 DAYS, ORAL; 10 MG, 1 IN 1 D, ORAL
     Route: 048
     Dates: start: 20071001, end: 20071101
  5. REVLIMID [Suspect]
     Indication: MYELODYSPLASTIC SYNDROME
     Dosage: 5 MG, DAILY FOR 28 DAYS, ORAL; 10 MG, 1 IN 1 D, ORAL
     Route: 048
     Dates: start: 20071001, end: 20071101
  6. REVLIMID [Suspect]
     Indication: NEOPLASM
     Dosage: 5 MG, DAILY FOR 28 DAYS, ORAL; 10 MG, 1 IN 1 D, ORAL
     Route: 048
     Dates: start: 20071001, end: 20071101

REACTIONS (2)
  - ARTHRALGIA [None]
  - ARTHRITIS [None]
